FAERS Safety Report 9767855 (Version 1)
Quarter: 2013Q3

REPORT INFORMATION
  Report Type: Spontaneous
  Country: FR (occurrence: None)
  Receive Date: 20130827
  Receipt Date: 20130827
  Transmission Date: 20140515
  Serious: Yes (Other)
  Sender: FDA-Public Use
  Company Number: 056-21880-11120676

PATIENT
  Age: 74 Year
  Sex: Female
  Weight: 61 kg

DRUGS (2)
  1. REVLIMID (LENALIDOMIDE) (CAPSULES) [Suspect]
     Indication: MYELODYSPLASTIC SYNDROME
     Dosage: COURSE OF 3 WEEKS/ 4 WEEKS
     Route: 048
     Dates: start: 20110927, end: 20120118
  2. RED BLOOD CELLS [Concomitant]

REACTIONS (3)
  - Adenocarcinoma of colon [None]
  - Abdominal pain [None]
  - Anaemia [None]
